FAERS Safety Report 10366040 (Version 1)
Quarter: 2014Q3

REPORT INFORMATION
  Report Type: Spontaneous
  Country: GB (occurrence: None)
  Receive Date: 20140804
  Receipt Date: 20140804
  Transmission Date: 20150326
  Serious: Yes (Other)
  Sender: FDA-Public Use
  Company Number: AUR-APL-2014-08100

PATIENT
  Age: 79 Year
  Sex: Male

DRUGS (2)
  1. MIRTAZAPINE 15MG (MIRTAZAPINE) UNKNOWN, 15MG [Suspect]
     Active Substance: MIRTAZAPINE
     Indication: INSOMNIA
     Route: 048
  2. ZISPIN [Suspect]
     Active Substance: MIRTAZAPINE
     Indication: INSOMNIA
     Route: 048

REACTIONS (4)
  - Bone cancer [None]
  - Drug ineffective [None]
  - Product quality issue [None]
  - Anxiety [None]
